FAERS Safety Report 10640294 (Version 1)
Quarter: 2014Q4

REPORT INFORMATION
  Report Type: Spontaneous
  Country: BE (occurrence: BE)
  Receive Date: 20141209
  Receipt Date: 20141209
  Transmission Date: 20150529
  Serious: Yes (Other)
  Sender: FDA-Public Use
  Company Number: BE-BAYER-2014-177168

PATIENT
  Sex: Male

DRUGS (1)
  1. AVELOX [Suspect]
     Active Substance: MOXIFLOXACIN HYDROCHLORIDE
     Indication: PNEUMONIA

REACTIONS (5)
  - Hepatitis toxic [None]
  - Fatigue [None]
  - Respiratory disorder [None]
  - Pleural effusion [None]
  - Asthenia [None]
